FAERS Safety Report 8129908-0 (Version None)
Quarter: 2012Q1

REPORT INFORMATION
  Report Type: 
  Country: None (occurrence: None)
  Receive Date: 20120103
  Receipt Date: 20111118
  Transmission Date: 20120608
  Serious: No
  Sender: FDA-Public Use
  Company Number: AE-2011-003715

PATIENT
  Age: 61 Year
  Sex: Male
  Weight: 221 kg

DRUGS (6)
  1. SPIRONOLACTONE [Concomitant]
  2. INCIVEK [Suspect]
     Dosage: 2250 MG (750 MG, 1 IN 8 HR), ORAL
     Route: 048
     Dates: start: 20111116
  3. AMLODIPINE [Concomitant]
  4. PEGINTERFERON ALFA-2B [Concomitant]
  5. RIBAVIRIN [Concomitant]
  6. LISINOPRIL [Concomitant]

REACTIONS (3)
  - HAEMORRHOIDS [None]
  - ANORECTAL DISCOMFORT [None]
  - PROCTALGIA [None]
